FAERS Safety Report 6853911-1 (Version None)
Quarter: 2010Q3

REPORT INFORMATION
  Report Type: 
  Country: None (occurrence: None)
  Receive Date: 20100717
  Receipt Date: 20080112
  Transmission Date: 20110219
  Serious: No
  Sender: FDA-Public Use
  Company Number: US-PFIZER INC-2007107729

PATIENT
  Sex: Male
  Weight: 63.6 kg

DRUGS (3)
  1. CHANTIX [Suspect]
     Indication: SMOKING CESSATION THERAPY
     Dates: start: 20070101
  2. ACETYLSALICYLIC ACID [Suspect]
  3. MAXZIDE [Concomitant]
     Indication: BLOOD PRESSURE ABNORMAL

REACTIONS (4)
  - ABNORMAL DREAMS [None]
  - NAUSEA [None]
  - SKIN LACERATION [None]
  - WOUND HAEMORRHAGE [None]
